FAERS Safety Report 16596972 (Version 1)
Quarter: 2019Q3

REPORT INFORMATION
  Report Type: Spontaneous
  Country: CH (occurrence: CH)
  Receive Date: 20190719
  Receipt Date: 20190719
  Transmission Date: 20191004
  Serious: Yes (Death, Life-Threatening, Hospitalization, Other)
  Sender: FDA-Public Use
  Company Number: CH-BEH-2019104583

PATIENT
  Age: 84 Year
  Sex: Female

DRUGS (12)
  1. ENTRESTO [Concomitant]
     Active Substance: SACUBITRIL\VALSARTAN
     Dosage: 50 MILLIGRAM, BID
     Route: 048
     Dates: start: 201902
  2. ENTRESTO [Concomitant]
     Active Substance: SACUBITRIL\VALSARTAN
     Dosage: 50 MILLIGRAM, QD
     Route: 048
     Dates: end: 201901
  3. METOPROLOL MEPHA ZOK [Concomitant]
     Active Substance: METOPROLOL SUCCINATE
     Dosage: 50 MILLIGRAM, BID
     Route: 048
  4. ARAVA [Suspect]
     Active Substance: LEFLUNOMIDE
     Dosage: 10 MILLIGRAM, QD
     Route: 048
     Dates: start: 20190209, end: 20190216
  5. CALCIMAGONA D3 [Concomitant]
     Active Substance: CALCIUM CARBONATE\CHOLECALCIFEROL
     Dosage: 1 DOSAGE FORM
     Route: 048
  6. ATORVASTATIN MEPHA [Suspect]
     Active Substance: ATORVASTATIN
     Indication: CARDIOMYOPATHY
     Dosage: 40 MILLIGRAM, QD
     Route: 048
     Dates: start: 201406, end: 201609
  7. ELIQUIS [Concomitant]
     Active Substance: APIXABAN
     Dosage: 5 MILLIGRAM, BID
     Route: 048
  8. BACTRIM [Suspect]
     Active Substance: SULFAMETHOXAZOLE\TRIMETHOPRIM
     Indication: ANTIFUNGAL PROPHYLAXIS
     Dosage: TIME INTERVAL: 2.33 D
     Route: 048
     Dates: start: 20190205, end: 20190216
  9. PANTOPRAZOL SANDOZ [Concomitant]
     Active Substance: PANTOPRAZOLE SODIUM
     Dosage: 40 MILLIGRAM, QD
     Route: 048
  10. PRIVIGEN [Suspect]
     Active Substance: HUMAN IMMUNOGLOBULIN G
     Indication: MYOPATHY
     Dosage: 35 GRAM, QD
     Route: 042
     Dates: start: 20190205, end: 20190208
  11. CIPRALEX [Concomitant]
     Active Substance: ESCITALOPRAM OXALATE
     Dosage: 10 MILLIGRAM, QD
     Route: 048
  12. SPIRICORT [Suspect]
     Active Substance: PREDNISOLONE
     Dosage: 50 MILLIGRAM, QD
     Route: 048
     Dates: start: 20190205, end: 20190216

REACTIONS (11)
  - Hepatic failure [Fatal]
  - Tachycardia [Fatal]
  - No adverse event [Unknown]
  - Necrotising myositis [Fatal]
  - Product use in unapproved indication [Unknown]
  - Hepatic enzyme increased [Fatal]
  - Oxygen saturation abnormal [Fatal]
  - Acute kidney injury [Not Recovered/Not Resolved]
  - Immune-mediated necrotising myopathy [Fatal]
  - Blood glucose increased [Not Recovered/Not Resolved]
  - Cardiopulmonary failure [Fatal]

NARRATIVE: CASE EVENT DATE: 201902
